FAERS Safety Report 4937118-0 (Version None)
Quarter: 2006Q1

REPORT INFORMATION
  Report Type: 
  Country: None (occurrence: None)
  Receive Date: 20060302
  Receipt Date: 20060214
  Transmission Date: 20060701
  Serious: Yes (Hospitalization)
  Sender: FDA-Public Use
  Company Number: S06-SWI-00073-01

PATIENT
  Age: 53 Year
  Sex: Female

DRUGS (9)
  1. CITALOPRAM HYDROBROMIDE [Suspect]
     Dosage: 10 MG QD PO
     Route: 048
     Dates: start: 20041001, end: 20051110
  2. CORDARONE [Suspect]
     Indication: ATRIAL FIBRILLATION
     Dosage: 200 MG QD PO
     Route: 048
     Dates: start: 20031001, end: 20051107
  3. CORDARONE [Suspect]
     Indication: ATRIAL FLUTTER
     Dosage: 200 MG QD PO
     Route: 048
     Dates: start: 20031001, end: 20051107
  4. ISOPTIN [Suspect]
     Dosage: 120 MG QD PO
     Route: 048
     Dates: start: 20031001, end: 20051107
  5. SINTROM [Concomitant]
  6. OMED (OMEPRAZOLE) (OMEPRAZOLE) [Concomitant]
  7. ZOLPIDEM TARTRATE [Concomitant]
  8. LORAZEPAM [Concomitant]
  9. ACETAMINOPHEN [Concomitant]

REACTIONS (11)
  - ABDOMINAL PAIN [None]
  - ELECTROCARDIOGRAM QT PROLONGED [None]
  - HYPERVENTILATION [None]
  - HYPOTHYROIDISM [None]
  - NAUSEA [None]
  - NON-OBSTRUCTIVE CARDIOMYOPATHY [None]
  - SINUS BRADYCARDIA [None]
  - TACHYCARDIA [None]
  - TETANY [None]
  - TROPONIN INCREASED [None]
  - VOMITING [None]
